FAERS Safety Report 11543344 (Version 1)
Quarter: 2015Q3

REPORT INFORMATION
  Report Type: Spontaneous
  Country: US (occurrence: US)
  Receive Date: 20150923
  Receipt Date: 20150923
  Transmission Date: 20151125
  Serious: Yes (Other)
  Sender: FDA-Public Use
  Company Number: US-BRISTOL-MYERS SQUIBB COMPANY-BMS-2015-061853

PATIENT
  Sex: Female
  Weight: 81.63 kg

DRUGS (1)
  1. KENALOG-40 [Suspect]
     Active Substance: TRIAMCINOLONE ACETONIDE
     Indication: JOINT INJURY
     Dosage: 80 MG, UNK
     Route: 065
     Dates: start: 20150824

REACTIONS (3)
  - Dysmenorrhoea [Unknown]
  - Tremor [Unknown]
  - Postmenopausal haemorrhage [Unknown]
